FAERS Safety Report 17724395 (Version 1)
Quarter: 2020Q2

REPORT INFORMATION
  Report Type: Report from Study
  Country: FR (occurrence: FR)
  Receive Date: 20200429
  Receipt Date: 20200429
  Transmission Date: 20200714
  Serious: Yes (Other)
  Sender: FDA-Public Use
  Company Number: FR-PFIZER INC-2019348459

PATIENT
  Age: 63 Year
  Sex: Male
  Weight: 64 kg

DRUGS (9)
  1. FLUOROURACIL. [Suspect]
     Active Substance: FLUOROURACIL
     Dosage: 2503 MG, CYCLIC
     Route: 042
     Dates: start: 20160831, end: 20160831
  2. FLUOROURACIL. [Suspect]
     Active Substance: FLUOROURACIL
     Dosage: 417 MG, CYCLIC
     Route: 040
     Dates: start: 20160831, end: 20160831
  3. FLUOROURACIL. [Suspect]
     Active Substance: FLUOROURACIL
     Indication: COLORECTAL CANCER METASTATIC
     Dosage: 417 MG, CYCLIC
     Route: 040
     Dates: start: 20150528, end: 20150528
  4. IRINOTECAN HCL [Suspect]
     Active Substance: IRINOTECAN HYDROCHLORIDE
     Indication: COLORECTAL CANCER METASTATIC
     Dosage: 219 MG, CYCLIC
     Route: 042
     Dates: start: 20160831, end: 20160831
  5. AFLIBERCEPT [Suspect]
     Active Substance: AFLIBERCEPT
     Dosage: 260 MG, CYCLIC
     Route: 042
     Dates: start: 20150528, end: 20150528
  6. CALCIUM FOLINATE [Suspect]
     Active Substance: LEUCOVORIN CALCIUM
     Dosage: 348 MG, CYCLIC
     Route: 042
     Dates: start: 20150528, end: 20150528
  7. CALCIUM FOLINATE [Suspect]
     Active Substance: LEUCOVORIN CALCIUM
     Indication: COLORECTAL CANCER METASTATIC
     Dosage: 348 MG, CYCLIC
     Route: 042
     Dates: start: 20160831, end: 20160831
  8. IRINOTECAN HCL [Suspect]
     Active Substance: IRINOTECAN HYDROCHLORIDE
     Dosage: 219 MG, CYCLIC
     Route: 042
     Dates: start: 20150528, end: 20150528
  9. AFLIBERCEPT [Suspect]
     Active Substance: AFLIBERCEPT
     Indication: COLORECTAL CANCER METASTATIC
     Dosage: 260 MG, CYCLIC
     Route: 042
     Dates: start: 20160831, end: 20160831

REACTIONS (2)
  - Proteinuria [Recovered/Resolved]
  - Hypertension [Recovered/Resolved]

NARRATIVE: CASE EVENT DATE: 20160913
